FAERS Safety Report 5698851-9 (Version None)
Quarter: 2008Q2

REPORT INFORMATION
  Report Type: 
  Country: None (occurrence: None)
  Receive Date: 20080408
  Receipt Date: 20060919
  Transmission Date: 20081010
  Serious: No
  Sender: FDA-Public Use
  Company Number: PR-BAYER-PR-2006-027763

PATIENT
  Age: 34 Year
  Sex: Male
  Weight: 86 kg

DRUGS (3)
  1. ULTRAVIST 300 [Suspect]
     Indication: COMPUTERISED TOMOGRAM
     Dosage: UNIT DOSE: 90 ML
     Route: 042
     Dates: start: 20060919, end: 20060919
  2. PROVENTIL [Concomitant]
     Indication: COUGH
     Dates: start: 20060919
  3. BENADRYL ^PFIZER WARNER-LAMBERT^ [Concomitant]
     Indication: LIP SWELLING
     Dates: start: 20060919

REACTIONS (3)
  - COUGH [None]
  - LIP SWELLING [None]
  - THROAT IRRITATION [None]
